FAERS Safety Report 5457223-2 (Version None)
Quarter: 2007Q3

REPORT INFORMATION
  Report Type: 
  Country: None (occurrence: None)
  Receive Date: 20070918
  Receipt Date: 20070123
  Transmission Date: 20080115
  Serious: No
  Sender: FDA-Public Use
  Company Number: US-ASTRAZENECA-2007UW01378

PATIENT
  Age: 50 Year
  Sex: Female
  Weight: 137.9 kg

DRUGS (6)
  1. SEROQUEL [Suspect]
     Indication: SCHIZOPHRENIA
     Route: 048
  2. SEROQUEL [Suspect]
     Indication: ANXIETY
     Route: 048
  3. CARBAMAZEPINE [Suspect]
  4. EFFEXOR [Concomitant]
  5. ALPRAZOLAM [Concomitant]
  6. FLUOXETINE [Concomitant]

REACTIONS (2)
  - FALL [None]
  - WEIGHT INCREASED [None]
